FAERS Safety Report 8812562 (Version 2)
Quarter: 2012Q4

REPORT INFORMATION
  Report Type: 
  Country: SV (occurrence: SV)
  Receive Date: 20120927
  Receipt Date: 20121004
  Transmission Date: 20130627
  Serious: Yes (Death, Other)
  Sender: FDA-Public Use
  Company Number: PHHO2005SV07603

PATIENT
  Age: 15 Year
  Sex: Female
  Weight: 46 kg

DRUGS (4)
  1. GLIVEC [Suspect]
     Indication: BLAST CRISIS IN MYELOGENOUS LEUKAEMIA
     Dosage: 600 mg, QD
     Route: 048
     Dates: start: 20050405, end: 20050505
  2. GLIVEC [Suspect]
     Dates: start: 20050406
  3. CYTARABINE [Concomitant]
     Indication: BLAST CRISIS IN MYELOGENOUS LEUKAEMIA
  4. MITOXANTRONE [Concomitant]
     Indication: BLAST CRISIS IN MYELOGENOUS LEUKAEMIA

REACTIONS (9)
  - Respiratory failure [Fatal]
  - Septic shock [Unknown]
  - Tachypnoea [Unknown]
  - Tachycardia [Unknown]
  - Pyrexia [Unknown]
  - Hypotension [Unknown]
  - Infection [Unknown]
  - Neutropenia [Unknown]
  - Diarrhoea [Unknown]
